FAERS Safety Report 6970872-5 (Version None)
Quarter: 2010Q3

REPORT INFORMATION
  Report Type: 
  Country: None (occurrence: None)
  Receive Date: 20100908
  Receipt Date: 20100901
  Transmission Date: 20110219
  Serious: Yes (Hospitalization)
  Sender: FDA-Public Use
  Company Number: B0672484A

PATIENT
  Age: 80 Year
  Sex: Female

DRUGS (8)
  1. AUGMENTIN '125' [Suspect]
     Indication: PRODUCT USED FOR UNKNOWN INDICATION
     Dosage: 1G THREE TIMES PER DAY
     Route: 065
     Dates: start: 20100503, end: 20100505
  2. CEFTAZIDIME [Suspect]
     Indication: PRODUCT USED FOR UNKNOWN INDICATION
     Route: 065
     Dates: start: 20100512
  3. LOVENOX [Suspect]
     Indication: PRODUCT USED FOR UNKNOWN INDICATION
     Route: 058
     Dates: start: 20100502, end: 20100507
  4. HEPARINE CHOAY [Suspect]
     Indication: PRODUCT USED FOR UNKNOWN INDICATION
     Route: 042
     Dates: start: 20100508, end: 20100510
  5. CIFLOX [Suspect]
     Indication: PRODUCT USED FOR UNKNOWN INDICATION
     Route: 065
     Dates: start: 20100506, end: 20100512
  6. PIPERACILLIN AND TAZOBACTAM [Suspect]
     Indication: PRODUCT USED FOR UNKNOWN INDICATION
     Route: 042
     Dates: start: 20100506, end: 20100513
  7. BACTRIM [Suspect]
     Indication: PRODUCT USED FOR UNKNOWN INDICATION
     Route: 065
     Dates: start: 20100508, end: 20100514
  8. LASIX [Suspect]
     Indication: PRODUCT USED FOR UNKNOWN INDICATION
     Route: 065
     Dates: start: 20100508, end: 20100517

REACTIONS (4)
  - BLOOD IMMUNOGLOBULIN G DECREASED [None]
  - LEUKOPENIA [None]
  - PURPURA [None]
  - THROMBOCYTOPENIA [None]
